FAERS Safety Report 5589423-5 (Version None)
Quarter: 2008Q1

REPORT INFORMATION
  Report Type: 
  Country: None (occurrence: None)
  Receive Date: 20080109
  Receipt Date: 20080109
  Transmission Date: 20080703
  Serious: Yes (Hospitalization)
  Sender: FDA-Public Use
  Company Number: None

PATIENT
  Sex: Female
  Weight: 152.5 kg

DRUGS (3)
  1. TEMOZOLOMIDE [Suspect]
     Dosage: 1800 MG
  2. COMPAZINE [Concomitant]
  3. KEPPRA [Concomitant]

REACTIONS (3)
  - FATIGUE [None]
  - HYPOKALAEMIA [None]
  - WEIGHT DECREASED [None]
